FAERS Safety Report 14611761 (Version 1)
Quarter: 2018Q1

REPORT INFORMATION
  Report Type: Spontaneous
  Country: ZA (occurrence: ZA)
  Receive Date: 20180308
  Receipt Date: 20180308
  Transmission Date: 20180509
  Serious: Yes (Hospitalization)
  Sender: FDA-Public Use
  Company Number: ZA-NOVOPROD-588477

PATIENT
  Age: 28 Year
  Sex: Female

DRUGS (3)
  1. OPTISULIN                          /00773001/ [Concomitant]
     Dosage: UNK
     Route: 065
  2. NOVORAPID [Suspect]
     Active Substance: INSULIN ASPART
     Indication: DIABETES MELLITUS
     Dosage: IU
     Route: 058
  3. OPTISULIN                          /00773001/ [Concomitant]
     Indication: PRODUCT USED FOR UNKNOWN INDICATION
     Dosage: 32UNITS MANE; 30UNITS NOCTE
     Route: 065

REACTIONS (4)
  - Dyspnoea [Unknown]
  - Weight decreased [Unknown]
  - Pain in extremity [Unknown]
  - Blood glucose increased [Unknown]
